FAERS Safety Report 25453141 (Version 1)
Quarter: 2025Q2

REPORT INFORMATION
  Report Type: Spontaneous
  Country: JP (occurrence: JP)
  Receive Date: 20250618
  Receipt Date: 20250618
  Transmission Date: 20250716
  Serious: Yes (Death)
  Sender: MALLINCKRODT
  Company Number: JP-MALLINCKRODT-MNK202503491

PATIENT

DRUGS (1)
  1. NITRIC OXIDE [Suspect]
     Active Substance: NITRIC OXIDE
     Indication: Neonatal pulmonary hypertension
     Route: 055
     Dates: start: 20250602, end: 20250602

REACTIONS (2)
  - Potter^s syndrome [Fatal]
  - Amniotic band syndrome [Fatal]
